FAERS Safety Report 8820476 (Version 1)
Quarter: 2012Q4

REPORT INFORMATION
  Report Type: 
  Country: US (occurrence: US)
  Receive Date: 20121002
  Receipt Date: 20121002
  Transmission Date: 20130627
  Serious: No
  Sender: FDA-Public Use
  Company Number: US-009507513-1209USA010977

PATIENT
  Sex: Male

DRUGS (1)
  1. MIRALAX [Suspect]
     Indication: CONSTIPATION
     Dosage: 1/2 tsp, Unknown
     Route: 048

REACTIONS (3)
  - Mucous stools [Unknown]
  - Drug administered to patient of inappropriate age [Unknown]
  - Off label use [Unknown]
